FAERS Safety Report 8802964 (Version 1)
Quarter: 2012Q4

REPORT INFORMATION
  Report Type: 
  Country: DE (occurrence: DE)
  Receive Date: 20120922
  Receipt Date: 20120922
  Transmission Date: 20130627
  Serious: Yes (Life-Threatening, Hospitalization)
  Sender: FDA-Public Use
  Company Number: DE-009507513-1209DEU005073

PATIENT
  Age: 12 Year
  Sex: Female
  Weight: 50 kg

DRUGS (5)
  1. TEMODAL [Suspect]
     Indication: BRAIN STEM GLIOMA
     Dosage: 300 mg, UNK
     Route: 048
     Dates: start: 20120325
  2. DEXAMETHASONE [Concomitant]
     Indication: BRAIN OEDEMA
     Dosage: 3 x 8 milligrams
     Dates: start: 20120402, end: 20120407
  3. FLUCONAZOLE [Concomitant]
     Indication: OESOPHAGEAL CANDIDIASIS
     Dosage: 300 mg, UNK
     Route: 048
     Dates: start: 20120222, end: 20120329
  4. VORICONAZOLE [Concomitant]
     Indication: OESOPHAGEAL CANDIDIASIS
     Dosage: 800 mg, qd
     Route: 048
     Dates: start: 20120329, end: 20120330
  5. VORICONAZOLE [Concomitant]
     Dosage: 400 mg, qd
     Route: 048
     Dates: start: 20120330, end: 20120404

REACTIONS (7)
  - Altered state of consciousness [Not Recovered/Not Resolved]
  - Coma [Not Recovered/Not Resolved]
  - Papilloedema [Not Recovered/Not Resolved]
  - Respiratory arrest [Not Recovered/Not Resolved]
  - Respiratory rate decreased [Not Recovered/Not Resolved]
  - VIth nerve paralysis [Not Recovered/Not Resolved]
  - Wernicke^s encephalopathy [Not Recovered/Not Resolved]
